FAERS Safety Report 14249910 (Version 1)
Quarter: 2017Q4

REPORT INFORMATION
  Report Type: Spontaneous
  Country: GB (occurrence: GB)
  Receive Date: 20171205
  Receipt Date: 20171205
  Transmission Date: 20180321
  Serious: Yes (Life-Threatening, Hospitalization, Other)
  Sender: FDA-Public Use
  Company Number: None

PATIENT
  Age: 36 Year
  Sex: Female
  Weight: 58 kg

DRUGS (1)
  1. BETNOVATE [Suspect]
     Active Substance: BETAMETHASONE
     Indication: PREGNANCY
     Route: 061

REACTIONS (6)
  - Pruritus [None]
  - Staphylococcal sepsis [None]
  - Eczema herpeticum [None]
  - Skin infection [None]
  - Skin exfoliation [None]
  - Red man syndrome [None]

NARRATIVE: CASE EVENT DATE: 20140606
